FAERS Safety Report 10173626 (Version 2)
Quarter: 2014Q2

REPORT INFORMATION
  Report Type: Spontaneous
  Country: US (occurrence: None)
  Receive Date: 20140416
  Receipt Date: 20140604
  Transmission Date: 20141212
  Serious: No
  Sender: FDA-Public Use
  Company Number: 163-POMAL-13122149

PATIENT
  Age: 65 Year
  Sex: Female

DRUGS (6)
  1. POMALYST [Suspect]
     Indication: PLASMA CELL MYELOMA
     Dosage: 21 IN 28 D
     Route: 048
     Dates: start: 20131030, end: 20140205
  2. DECADRON (DEXAMETHASONE) [Concomitant]
  3. EXFORGE (AMLODIPINE W/VALSARTAN) [Concomitant]
  4. JANUVIA (SITAGLIPTIN PHOSPHATE) [Concomitant]
  5. NEXIUM (ESOMEPRAZOLE) [Concomitant]
  6. ZETIA (EZETIMIBE) [Concomitant]

REACTIONS (4)
  - Swollen tongue [None]
  - Lip swelling [None]
  - Hypoaesthesia oral [None]
  - Neuropathy peripheral [None]
